FAERS Safety Report 18481256 (Version 11)
Quarter: 2024Q2

REPORT INFORMATION
  Report Type: Spontaneous
  Country: IN (occurrence: IN)
  Receive Date: 20201109
  Receipt Date: 20240425
  Transmission Date: 20240716
  Serious: Yes (Hospitalization, Other)
  Sender: FDA-Public Use
  Company Number: IN-PFIZER INC-2020361276

PATIENT
  Age: 57 Year
  Sex: Female
  Weight: 88.3 kg

DRUGS (7)
  1. PALBOCICLIB [Suspect]
     Active Substance: PALBOCICLIB
     Indication: Breast cancer metastatic
     Dosage: 125 MG, CYCLIC (ONCE A DAY, DAY 1-21)
     Route: 048
     Dates: start: 20200916
  2. PALBOCICLIB [Suspect]
     Active Substance: PALBOCICLIB
     Dosage: 125 MG, CYCLIC DAILY, AFTER MEAL, D1-D21 THEN 7 DAYS OFF
     Route: 048
     Dates: start: 20210716
  3. LETRONAT [Concomitant]
     Dosage: UNK
     Dates: start: 20200915
  4. LETRONAT [Concomitant]
     Dosage: 2.5 MG, 1X/DAY
     Route: 048
  5. ZOLEDRONIC ACID [Concomitant]
     Active Substance: ZOLEDRONIC ACID
     Dosage: 100 MG
  6. CCM [Concomitant]
     Dosage: 1 DF, DAILY
  7. ZOLEDRONIC ACID [Concomitant]
     Active Substance: ZOLEDRONIC ACID
     Dosage: 4 MG IN 100ML NS IV OVER 30 MIN

REACTIONS (14)
  - Infection [Unknown]
  - Choking [Unknown]
  - Vulval abscess [Unknown]
  - Cough [Unknown]
  - Dry throat [Unknown]
  - Decreased appetite [Unknown]
  - Back pain [Unknown]
  - Malaise [Unknown]
  - Stress [Unknown]
  - Emotional distress [Unknown]
  - Haemoglobin decreased [Unknown]
  - White blood cell count decreased [Unknown]
  - Neutrophil count decreased [Unknown]
  - Platelet count decreased [Unknown]
